FAERS Safety Report 9648632 (Version 3)
Quarter: 2013Q4

REPORT INFORMATION
  Report Type: Spontaneous
  Country: US (occurrence: US)
  Receive Date: 20131028
  Receipt Date: 20131129
  Transmission Date: 20140711
  Serious: No
  Sender: FDA-Public Use
  Company Number: US-PFIZER INC-2013307510

PATIENT
  Age: 57 Year
  Sex: Female
  Weight: 85.26 kg

DRUGS (1)
  1. LYRICA [Suspect]
     Indication: NEURALGIA
     Dosage: (100 MG IN MORNING, 100MG IN AFTER NOON AND 200MG AT BED TIME), 3X/DAY
     Dates: end: 20131019

REACTIONS (3)
  - Malaise [Unknown]
  - Feeling cold [Unknown]
  - Feeling hot [Unknown]
